FAERS Safety Report 9915608 (Version 1)
Quarter: 2014Q1

REPORT INFORMATION
  Report Type: Spontaneous
  Country: US (occurrence: None)
  Receive Date: 20140219
  Receipt Date: 20140219
  Transmission Date: 20141002
  Serious: Yes (Disabling)
  Sender: FDA-Public Use
  Company Number: None

PATIENT
  Age: 42 Year
  Sex: Male
  Weight: 81.65 kg

DRUGS (1)
  1. MINOCYCLINE [Suspect]
     Indication: FOLLICULITIS
     Dosage: TAKEN BY MOUTH

REACTIONS (4)
  - Lupus-like syndrome [None]
  - Anaemia [None]
  - Anxiety disorder [None]
  - Hypothyroidism [None]
